FAERS Safety Report 5235575-6 (Version None)
Quarter: 2007Q1

REPORT INFORMATION
  Report Type: 
  Country: None (occurrence: None)
  Receive Date: 20070208
  Receipt Date: 20070208
  Transmission Date: 20070707
  Serious: Yes (Hospitalization)
  Sender: FDA-Public Use
  Company Number: None

PATIENT
  Age: 52 Year
  Sex: Female
  Weight: 66 kg

DRUGS (7)
  1. ATORVASTATIN CALCIUM [Suspect]
     Indication: HYPERLIPIDAEMIA
     Dosage: 10 MG AT BEDTIME PO
     Route: 048
  2. COUMADIN [Concomitant]
  3. ZANAFLEX [Concomitant]
  4. BUPROPION HCL [Concomitant]
  5. HYDROCHLOROTHIAZIDE [Concomitant]
  6. LIPITOR [Concomitant]
  7. BACTRIM DS [Concomitant]

REACTIONS (3)
  - DRUG TOXICITY [None]
  - HEPATITIS ACUTE [None]
  - MIXED HEPATOCELLULAR-CHOLESTATIC INJURY [None]
